FAERS Safety Report 4860187-3 (Version None)
Quarter: 2005Q4

REPORT INFORMATION
  Report Type: 
  Country: None (occurrence: None)
  Receive Date: 20051215
  Receipt Date: 20051206
  Transmission Date: 20060501
  Serious: Yes (Hospitalization)
  Sender: FDA-Public Use
  Company Number: TPA2005A01441

PATIENT
  Sex: Female

DRUGS (3)
  1. ACTOS [Suspect]
     Indication: DIABETES MELLITUS
     Dosage: PER ORAL
     Route: 048
  2. GLUCOTROL XL (GLIPIZIDE) (TABLETS) [Concomitant]
  3. METFORMIN (METFORMIN) (TABLETS) [Concomitant]

REACTIONS (1)
  - ANAEMIA [None]
